FAERS Safety Report 5887034-5 (Version None)
Quarter: 2008Q3

REPORT INFORMATION
  Report Type: 
  Country: None (occurrence: None)
  Receive Date: 20080917
  Receipt Date: 20080909
  Transmission Date: 20090109
  Serious: Yes (Other)
  Sender: FDA-Public Use
  Company Number: US-PFIZER INC-2008075344

PATIENT
  Sex: Female

DRUGS (3)
  1. LIPITOR [Suspect]
  2. VITAMIN D [Concomitant]
  3. IBANDRONATE SODIUM [Concomitant]

REACTIONS (1)
  - HALLUCINATION [None]
